FAERS Safety Report 11815544 (Version 1)
Quarter: 2015Q4

REPORT INFORMATION
  Report Type: Spontaneous
  Country: JP (occurrence: JP)
  Receive Date: 20151209
  Receipt Date: 20151209
  Transmission Date: 20160305
  Serious: Yes (Other)
  Sender: FDA-Public Use
  Company Number: JP-BAXTER-2015BAX066253

PATIENT
  Age: 7 Year
  Sex: Female

DRUGS (1)
  1. ENDOXAN 1G [Suspect]
     Active Substance: CYCLOPHOSPHAMIDE
     Indication: ACUTE LYMPHOCYTIC LEUKAEMIA RECURRENT
     Route: 065

REACTIONS (5)
  - Renal impairment [Recovering/Resolving]
  - Pulmonary hypertension [Unknown]
  - Cardiomegaly [Unknown]
  - Pericardial effusion [Unknown]
  - Thrombotic microangiopathy [Unknown]
